FAERS Safety Report 25964900 (Version 1)
Quarter: 2025Q4

REPORT INFORMATION
  Report Type: Spontaneous
  Country: US (occurrence: US)
  Receive Date: 20251027
  Receipt Date: 20251027
  Transmission Date: 20260118
  Serious: No
  Sender: BRISTOL-MYERS SQUIBB COMPANY
  Company Number: US-BRISTOL-MYERS SQUIBB COMPANY-2025-145911

PATIENT
  Age: 76 Year
  Sex: Female

DRUGS (1)
  1. KRAZATI [Suspect]
     Active Substance: ADAGRASIB
     Indication: Product used for unknown indication
     Dosage: 1200 MG/TAKE 3 TABLETS BY MOUTH TWICE A DAY WITH OR WITHOUT FOOD
     Route: 048

REACTIONS (2)
  - Brain fog [Unknown]
  - Diarrhoea [Unknown]
